FAERS Safety Report 6161218-3 (Version None)
Quarter: 2009Q2

REPORT INFORMATION
  Report Type: 
  Country: None (occurrence: None)
  Receive Date: 20090421
  Receipt Date: 20090416
  Transmission Date: 20091009
  Serious: Yes (Hospitalization)
  Sender: FDA-Public Use
  Company Number: US-JNJFOC-20090404348

PATIENT
  Age: 53 Year
  Sex: Male

DRUGS (11)
  1. RISPERDAL [Suspect]
     Indication: DRUG USE FOR UNKNOWN INDICATION
     Route: 065
  2. HALDOL [Suspect]
     Indication: DRUG USE FOR UNKNOWN INDICATION
     Route: 065
  3. ABILIFY [Suspect]
     Dosage: AT BED TIME
     Route: 065
  4. ABILIFY [Suspect]
     Indication: DRUG USE FOR UNKNOWN INDICATION
     Route: 065
  5. TYLENOL [Concomitant]
     Indication: PAIN
     Route: 065
  6. MAALOX [Concomitant]
     Dosage: AS NEEDED EVERY 6 HOURS
     Route: 065
  7. VISTORIL [Concomitant]
     Indication: ANXIETY
     Route: 065
  8. BENADRYL [Concomitant]
     Indication: SLEEP DISORDER
     Route: 048
  9. BENEDRYL [Concomitant]
     Indication: EXTRAPYRAMIDAL DISORDER
     Route: 030
  10. ATIVAN [Concomitant]
     Indication: AGITATION
     Dosage: ORAL OR INTRAMUSCULAR AS NEEDED
     Route: 065
  11. TRAZAODONE [Concomitant]
     Indication: INSOMNIA
     Dosage: AS NEEDED
     Route: 066

REACTIONS (3)
  - HYPERSENSITIVITY [None]
  - RESTLESS LEGS SYNDROME [None]
  - SCHIZOAFFECTIVE DISORDER [None]
